FAERS Safety Report 7117273-7 (Version None)
Quarter: 2010Q4

REPORT INFORMATION
  Report Type: 
  Country: None (occurrence: None)
  Receive Date: 20101122
  Receipt Date: 20101117
  Transmission Date: 20110411
  Serious: Yes (Death)
  Sender: FDA-Public Use
  Company Number: US-CEPHALON-2010006051

PATIENT
  Age: 45 Year
  Sex: Male

DRUGS (3)
  1. PROVIGIL [Suspect]
     Route: 048
  2. CLONIDINE [Concomitant]
     Route: 048
  3. SEROQUEL [Concomitant]
     Route: 048

REACTIONS (1)
  - COMPLETED SUICIDE [None]
